FAERS Safety Report 10061633 (Version 2)
Quarter: 2014Q2

REPORT INFORMATION
  Report Type: Spontaneous
  Country: GB (occurrence: None)
  Receive Date: 20140403
  Receipt Date: 20140422
  Transmission Date: 20141212
  Serious: Yes (Other)
  Sender: FDA-Public Use
  Company Number: FK201401097

PATIENT
  Age: 52 Year
  Sex: Male

DRUGS (3)
  1. OXALIPLATIN (MANUFACTURER UNKNOWN) (OXALIPLATIN) (OXALIPLATIN) [Suspect]
     Indication: COLORECTAL CANCER METASTATIC
     Route: 042
     Dates: start: 20120329, end: 20130913
  2. CAPECITABINE (MANUFACTURER UNKNOWN) (CAPECITABINE) (CAPECITABINE) [Suspect]
     Indication: COLORECTAL CANCER METASTATIC
     Route: 048
     Dates: start: 20120329, end: 20130913
  3. AVASTIN (BEVACIZUMAB) (BEVACIZUMAB) [Suspect]
     Indication: COLORECTAL CANCER METASTATIC
     Route: 042
     Dates: start: 20120329, end: 20130913

REACTIONS (1)
  - Pulmonary embolism [None]
